FAERS Safety Report 18176584 (Version 1)
Quarter: 2020Q3

REPORT INFORMATION
  Report Type: Report from Study
  Country: US (occurrence: US)
  Receive Date: 20200820
  Receipt Date: 20200820
  Transmission Date: 20201103
  Serious: Yes (Other)
  Sender: FDA-Public Use
  Company Number: US-PFIZER INC-2019322073

PATIENT
  Age: 75 Year
  Sex: Female

DRUGS (1)
  1. IBRANCE [Suspect]
     Active Substance: PALBOCICLIB
     Indication: BREAST CANCER FEMALE
     Dosage: 125 MG, CYCLIC, (DAILY, DAY 1?21 OF 28 DAY CYCLE/21 DAYS ON AND 7 DAYS OFF)
     Route: 048
     Dates: start: 201712

REACTIONS (7)
  - Neoplasm progression [Unknown]
  - Oral pain [Unknown]
  - White blood cell count decreased [Unknown]
  - Hair texture abnormal [Unknown]
  - Neuropathy peripheral [Unknown]
  - Fatigue [Unknown]
  - Alopecia [Unknown]

NARRATIVE: CASE EVENT DATE: 201712
